FAERS Safety Report 15984935 (Version 5)
Quarter: 2020Q2

REPORT INFORMATION
  Report Type: Report from Study
  Country: JP (occurrence: JP)
  Receive Date: 20190220
  Receipt Date: 20200619
  Transmission Date: 20200713
  Serious: Yes (Hospitalization)
  Sender: FDA-Public Use
  Company Number: JP-EISAI MEDICAL RESEARCH-EC-2019-052216

PATIENT
  Age: 66 Year
  Sex: Male
  Weight: 58 kg

DRUGS (15)
  1. NORVASC [Concomitant]
     Active Substance: AMLODIPINE BESYLATE
  2. LOXOPROFEN [Concomitant]
     Active Substance: LOXOPROFEN
  3. LENVATINIB [Suspect]
     Active Substance: LENVATINIB
     Indication: RENAL CELL CARCINOMA
     Route: 048
     Dates: start: 20180606
  4. FEBURIC [Concomitant]
     Active Substance: FEBUXOSTAT
  5. REBAMIPIDE [Concomitant]
     Active Substance: REBAMIPIDE
  6. HIRUDOID [Concomitant]
     Active Substance: GLYCOSAMINOGLYCANS
  7. TALION OD [Concomitant]
     Active Substance: BEPOTASTINE BESYLATE
  8. CALONAL [Concomitant]
     Active Substance: ACETAMINOPHEN
  9. MYSLEE [Concomitant]
     Active Substance: ZOLPIDEM TARTRATE
  10. LOCOID [Concomitant]
     Active Substance: HYDROCORTISONE BUTYRATE
  11. LENVATINIB [Suspect]
     Active Substance: LENVATINIB
     Route: 048
     Dates: end: 20190117
  12. VEGIN [Concomitant]
  13. PEMBROLIZUMAB. [Suspect]
     Active Substance: PEMBROLIZUMAB
     Indication: RENAL CELL CARCINOMA
     Route: 041
     Dates: start: 20180606, end: 20190104
  14. FUROSEMIDE. [Concomitant]
     Active Substance: FUROSEMIDE
  15. THYRADIN S [Concomitant]
     Active Substance: LEVOTHYROXINE SODIUM

REACTIONS (1)
  - Pneumonitis [Not Recovered/Not Resolved]

NARRATIVE: CASE EVENT DATE: 20190215
